FAERS Safety Report 13030659 (Version 2)
Quarter: 2016Q4

REPORT INFORMATION
  Report Type: Spontaneous
  Country: KR (occurrence: KR)
  Receive Date: 20161215
  Receipt Date: 20161221
  Transmission Date: 20170207
  Serious: Yes (Death, Other)
  Sender: FDA-Public Use
  Company Number: KR-OTSUKA-2016_028093

PATIENT

DRUGS (1)
  1. DECITABINE. [Suspect]
     Active Substance: DECITABINE
     Indication: ACUTE MYELOID LEUKAEMIA
     Dosage: 20 MG/M2
     Route: 042

REACTIONS (4)
  - Treatment failure [Unknown]
  - Fatigue [Unknown]
  - Febrile neutropenia [Unknown]
  - Sepsis [Fatal]
